FAERS Safety Report 7175880-X (Version None)
Quarter: 2010Q4

REPORT INFORMATION
  Report Type: 
  Country: None (occurrence: None)
  Receive Date: 20101220
  Receipt Date: 20100428
  Transmission Date: 20110411
  Serious: Yes (Other)
  Sender: FDA-Public Use
  Company Number: US-AMGEN-QUU402601

PATIENT

DRUGS (5)
  1. ENBREL [Suspect]
     Indication: RHEUMATOID ARTHRITIS
     Dosage: 50 MG, QWK
     Route: 058
     Dates: start: 20100318, end: 20100408
  2. HYDROXYCHLOROQUINE [Concomitant]
     Dosage: 200 MG, BID
  3. SULFASALAZINE [Concomitant]
     Dosage: 500 MG, BID
  4. VERAPAMIL [Concomitant]
     Dosage: 80 MG, TID
  5. MONTELUKAST [Concomitant]
     Dosage: 10 MG, QD

REACTIONS (5)
  - DEPRESSED MOOD [None]
  - INJECTION SITE INDURATION [None]
  - INJECTION SITE PAIN [None]
  - INJECTION SITE REACTION [None]
  - TEARFULNESS [None]
